FAERS Safety Report 14712040 (Version 1)
Quarter: 2018Q2

REPORT INFORMATION
  Report Type: Spontaneous
  Country: US (occurrence: US)
  Receive Date: 20180404
  Receipt Date: 20180404
  Transmission Date: 20180711
  Serious: No
  Sender: FDA-Public Use
  Company Number: US-SA-2017SA186965

PATIENT
  Age: 26 Year
  Sex: Male

DRUGS (2)
  1. ALLEGRA-D 24 HOUR [Suspect]
     Active Substance: FEXOFENADINE HYDROCHLORIDE\PSEUDOEPHEDRINE HYDROCHLORIDE
     Indication: RHINORRHOEA
     Dosage: DOSE: 180/240 MG
     Route: 048
     Dates: end: 20170926
  2. ALLEGRA-D 24 HOUR [Suspect]
     Active Substance: FEXOFENADINE HYDROCHLORIDE\PSEUDOEPHEDRINE HYDROCHLORIDE
     Indication: THROAT IRRITATION
     Dosage: DOSE: 180/240 MG
     Route: 048
     Dates: end: 20170926

REACTIONS (1)
  - Drug ineffective [Unknown]
